FAERS Safety Report 17209956 (Version 2)
Quarter: 2020Q1

REPORT INFORMATION
  Report Type: Spontaneous
  Country: US (occurrence: US)
  Receive Date: 20191227
  Receipt Date: 20200211
  Transmission Date: 20200409
  Serious: Yes (Hospitalization, Other)
  Sender: FDA-Public Use
  Company Number: US-B.I. PHARMACEUTICALS,INC./RIDGEFIELD-2019-US-121870

PATIENT
  Sex: Female

DRUGS (1)
  1. SPIRIVA [Suspect]
     Active Substance: TIOTROPIUM BROMIDE MONOHYDRATE
     Indication: CHRONIC OBSTRUCTIVE PULMONARY DISEASE
     Dosage: ONE CAPSULES DAILY
     Route: 065

REACTIONS (10)
  - Small cell lung cancer [Unknown]
  - Metastases to central nervous system [Not Recovered/Not Resolved]
  - Blood calcium increased [Unknown]
  - Metastases to spine [Not Recovered/Not Resolved]
  - Non-small cell lung cancer metastatic [Not Recovered/Not Resolved]
  - Overdose [Unknown]
  - Dehydration [Unknown]
  - Non-small cell lung cancer metastatic [Not Recovered/Not Resolved]
  - Non-small cell lung cancer [Unknown]
  - Product quality issue [Unknown]

NARRATIVE: CASE EVENT DATE: 2016
